FAERS Safety Report 15675692 (Version 1)
Quarter: 2018Q4

REPORT INFORMATION
  Report Type: Spontaneous
  Country: US (occurrence: US)
  Receive Date: 20181130
  Receipt Date: 20181130
  Transmission Date: 20190205
  Serious: Yes (Other)
  Sender: FDA-Public Use
  Company Number: US-LPDUSPRD-20182247

PATIENT
  Age: 41 Year
  Weight: 135 kg

DRUGS (1)
  1. INJECTAFER [Suspect]
     Active Substance: FERRIC CARBOXYMALTOSE
     Dosage: 750 MG WEEKLY
     Route: 041
     Dates: start: 20180914, end: 20180914

REACTIONS (1)
  - Sensation of foreign body [Unknown]

NARRATIVE: CASE EVENT DATE: 20180914
